FAERS Safety Report 8023055-4 (Version None)
Quarter: 2012Q1

REPORT INFORMATION
  Report Type: 
  Country: None (occurrence: None)
  Receive Date: 20120104
  Receipt Date: 20120102
  Transmission Date: 20120608
  Serious: Yes (Hospitalization, Other)
  Sender: FDA-Public Use
  Company Number: NL-PFIZER INC-2011278050

PATIENT
  Age: 57 Year
  Sex: Female
  Weight: 60 kg

DRUGS (1)
  1. LYRICA [Suspect]
     Indication: FACIAL PAIN
     Dosage: 75MG
     Dates: start: 20111021, end: 20111028

REACTIONS (8)
  - TREMOR [None]
  - CONFUSIONAL STATE [None]
  - SOMNOLENCE [None]
  - FEELING ABNORMAL [None]
  - LOSS OF CONSCIOUSNESS [None]
  - AMNESIA [None]
  - BLISTER [None]
  - LISTLESS [None]
